FAERS Safety Report 16937110 (Version 1)
Quarter: 2019Q4

REPORT INFORMATION
  Report Type: Spontaneous
  Country: US (occurrence: US)
  Receive Date: 20191019
  Receipt Date: 20191019
  Transmission Date: 20200122
  Serious: No
  Sender: FDA-Public Use
  Company Number: US-009507513-1910USA004611

PATIENT
  Age: 85 Year
  Sex: Female
  Weight: 76.66 kg

DRUGS (13)
  1. XELJANZ [Suspect]
     Active Substance: TOFACITINIB CITRATE
     Indication: RHEUMATOID ARTHRITIS
     Dosage: 11 MILLIGRAM
  2. VITAMIN D (UNSPECIFIED) [Concomitant]
     Active Substance: VITAMIN D NOS
     Dosage: 50 MILLIGRAM, 250 %
  3. CALCIUM (UNSPECIFIED) [Concomitant]
     Active Substance: CALCIUM
     Dosage: 2 DOSAGE FORM, QD
  4. PRINIVIL [Suspect]
     Active Substance: LISINOPRIL
     Dosage: 20 MILLIGRAM, QD
     Route: 048
  5. LEVOTHYROXINE SODIUM. [Suspect]
     Active Substance: LEVOTHYROXINE SODIUM
     Dosage: 88 MILLIGRAM, QD
  6. NATURE MADE TRIPLE FLEX [Concomitant]
     Dosage: 1500 MG
  7. GELATIN [Concomitant]
     Active Substance: GELATIN
  8. ANTIMICROBIAL (UNSPECIFIED) [Concomitant]
     Active Substance: UNSPECIFIED INGREDIENT
  9. BROMELAINS [Concomitant]
     Active Substance: BROMELAINS
  10. QUINCY BIOSCIENCE PREVAGEN [Concomitant]
     Dosage: 1 DOSAGE FORM, QD
  11. PREDNISONE. [Suspect]
     Active Substance: PREDNISONE
     Dosage: 5 MILLIGRAM, QD
  12. VITAMINS (UNSPECIFIED) [Concomitant]
     Active Substance: VITAMINS
     Dosage: 200 %
  13. BEE POLLEN [Concomitant]
     Active Substance: BEE POLLEN

REACTIONS (4)
  - Localised infection [Recovered/Resolved]
  - Accident [Recovered/Resolved]
  - White blood cell count decreased [Unknown]
  - Limb injury [Recovered/Resolved]

NARRATIVE: CASE EVENT DATE: 20190614
